FAERS Safety Report 7032767-0 (Version None)
Quarter: 2010Q4

REPORT INFORMATION
  Report Type: 
  Country: None (occurrence: None)
  Receive Date: 20101007
  Receipt Date: 20100923
  Transmission Date: 20110411
  Serious: No
  Sender: FDA-Public Use
  Company Number: US-PFIZER INC-2010121333

PATIENT
  Sex: Male
  Weight: 80 kg

DRUGS (3)
  1. XALATAN [Suspect]
     Indication: GLAUCOMA
     Dosage: ONE DROP IN EACH EYE DAILY
     Route: 047
  2. COSOPT [Suspect]
     Indication: GLAUCOMA
     Dosage: UNK
     Route: 047
  3. AZOPT [Concomitant]
     Indication: GLAUCOMA
     Dosage: 1 DROP IN EACH EYE EVERY 12 HOURS
     Route: 047

REACTIONS (1)
  - INTRAOCULAR PRESSURE INCREASED [None]
